FAERS Safety Report 7997182-1 (Version None)
Quarter: 2011Q4

REPORT INFORMATION
  Report Type: 
  Country: None (occurrence: None)
  Receive Date: 20111221
  Receipt Date: 20111213
  Transmission Date: 20120403
  Serious: Yes (Hospitalization)
  Sender: FDA-Public Use
  Company Number: ES-MPIJNJ-2011-06130

PATIENT

DRUGS (4)
  1. MELPHALAN HYDROCHLORIDE [Suspect]
     Indication: MULTIPLE MYELOMA
     Dosage: 13 MG, UNK
     Route: 048
     Dates: start: 20111025, end: 20111028
  2. VELCADE [Suspect]
     Dosage: 1.0 MG/M2, UNK
     Route: 042
     Dates: start: 20111213
  3. VELCADE [Suspect]
     Indication: MULTIPLE MYELOMA
     Dosage: 1.83 MG, UNK
     Route: 042
     Dates: start: 20111025, end: 20111125
  4. PREDNISONE [Suspect]
     Indication: MULTIPLE MYELOMA
     Dosage: 85 MG, UNK
     Route: 048
     Dates: start: 20111025, end: 20111028

REACTIONS (1)
  - CARDIAC FAILURE [None]
